FAERS Safety Report 22538617 (Version 1)
Quarter: 2023Q2

REPORT INFORMATION
  Report Type: Spontaneous
  Country: None (occurrence: GR)
  Receive Date: 20230609
  Receipt Date: 20230609
  Transmission Date: 20230722
  Serious: Yes (Other)
  Sender: FDA-Public Use
  Company Number: GR-Therakind Limited-2142506

PATIENT
  Age: 5 Decade
  Sex: Male

DRUGS (3)
  1. METHOTREXATE [Suspect]
     Active Substance: METHOTREXATE
     Indication: Product used for unknown indication
  2. CORTISONE (HYDROCORTISONE) [Concomitant]
     Active Substance: HYDROCORTISONE
  3. SIMPONI [Suspect]
     Active Substance: GOLIMUMAB

REACTIONS (5)
  - COVID-19 [Unknown]
  - Weight decreased [Unknown]
  - Pulmonary mass [Unknown]
  - Acute febrile neutrophilic dermatosis [Unknown]
  - Eating disorder [Unknown]
